FAERS Safety Report 13677458 (Version 1)
Quarter: 2017Q2

REPORT INFORMATION
  Report Type: Spontaneous
  Country: US (occurrence: US)
  Receive Date: 20170622
  Receipt Date: 20170622
  Transmission Date: 20170830
  Serious: Yes (Other)
  Sender: FDA-Public Use
  Company Number: US-OTSUKA-2017_012176

PATIENT
  Age: 85 Year
  Sex: Male

DRUGS (2)
  1. SAMSCA [Suspect]
     Active Substance: TOLVAPTAN
     Indication: BLOOD OSMOLARITY DECREASED
     Dosage: 30 MG, QD
     Route: 048
     Dates: start: 20170421
  2. SAMSCA [Suspect]
     Active Substance: TOLVAPTAN
     Indication: HYPONATRAEMIA

REACTIONS (2)
  - Hospice care [Unknown]
  - Off label use [Unknown]

NARRATIVE: CASE EVENT DATE: 20170421
